FAERS Safety Report 4000870 (Version 31)
Quarter: 2020Q3

REPORT INFORMATION
  Report Type: Report from Study
  Country: DE (occurrence: DE)
  Receive Date: 20030922
  Receipt Date: 20200727
  Transmission Date: 20201103
  Serious: Yes (Death, Life-Threatening, Hospitalization, Other)
  Sender: FDA-Public Use
  Company Number: DE-BRISTOL-MYERS SQUIBB COMPANY-12380408

PATIENT
  Age: 73 Year
  Sex: Female
  Weight: 69 kg

DRUGS (58)
  1. FRAGMIN [Suspect]
     Active Substance: DALTEPARIN SODIUM
     Indication: THROMBOSIS PROPHYLAXIS
     Dosage: 2500 INTERNATIONAL UNIT, QD
     Route: 058
     Dates: start: 20010703, end: 20010714
  2. LASIX [Suspect]
     Active Substance: FUROSEMIDE
     Indication: HYPERTENSION
     Dosage: 120 MILLIGRAM, QD
     Route: 042
     Dates: start: 20010703, end: 20010714
  3. MOLSIDOMINE [Suspect]
     Active Substance: MOLSIDOMINE
     Dosage: 8 MG ONCE DAILY (DOSE REDUCED FROM 16 TO 8 MG DAILY)
     Route: 048
     Dates: end: 20010714
  4. PERENTEROL [Suspect]
     Active Substance: SACCHAROMYCES CEREVISIAE
     Indication: DIARRHOEA
     Dosage: 100 MG TO 300 MG, QD
     Route: 048
     Dates: start: 20010711, end: 20010714
  5. LANTUS [Suspect]
     Active Substance: INSULIN GLARGINE
     Indication: DIABETES MELLITUS
     Dosage: 16 INTERNATIONAL UNIT, QD
     Route: 058
     Dates: start: 20010616, end: 20010629
  6. IRENAT [Suspect]
     Active Substance: SODIUM PERCHLORATE
     Dosage: 20 GTT DROPS, TID
     Route: 048
     Dates: start: 20010618, end: 20010714
  7. CARBIMAZOLE [Suspect]
     Active Substance: CARBIMAZOLE
     Dosage: 20 MILLIGRAM, QD
     Route: 048
     Dates: start: 20010621, end: 20010714
  8. TRANXENE [Suspect]
     Active Substance: CLORAZEPATE DIPOTASSIUM
     Indication: RESTLESSNESS
     Dosage: 10 MILLIGRAM, QD
     Route: 048
     Dates: start: 20010710, end: 20010714
  9. KALIUM [POTASSIUM] [Suspect]
     Active Substance: POTASSIUM
     Indication: ELECTROLYTE IMBALANCE
     Dosage: 1500 MILLIGRAM, QID
     Route: 048
     Dates: start: 20010703, end: 20010714
  10. LEXOTANIL [Concomitant]
     Active Substance: BROMAZEPAM
     Indication: RESTLESSNESS
     Dosage: 2 MILLIGRAM
     Route: 065
  11. AMPHOTERICIN B;TETRACYCLINE HYDROCHLORIDE [Suspect]
     Active Substance: AMPHOTERICIN B\TETRACYCLINE
     Indication: ANTIFUNGAL PROPHYLAXIS
     Dosage: 200 MILLIGRAM, QD
     Route: 048
     Dates: start: 20010703, end: 20010714
  12. ISOSORBIDE MONONITRATE. [Suspect]
     Active Substance: ISOSORBIDE MONONITRATE
     Indication: CORONARY ARTERY DISEASE
     Dosage: 1 DOSAGE FORM, QD
     Route: 048
     Dates: start: 20010703, end: 20010714
  13. METOCLOPRAMIDE HYDROCHLORIDE. [Suspect]
     Active Substance: METOCLOPRAMIDE HYDROCHLORIDE
     Dosage: 75 MILLIGRAM, QD
     Route: 048
     Dates: start: 20010704, end: 20010712
  14. PANTOZOL [Suspect]
     Active Substance: PANTOPRAZOLE SODIUM
     Indication: PROPHYLAXIS
     Dosage: 80 MILLIGRAM, QD
     Route: 048
     Dates: start: 20010616
  15. IRENAT [Suspect]
     Active Substance: SODIUM PERCHLORATE
     Indication: HYPERTHYROIDISM
     Dosage: 688 MILLIGRAM
     Route: 048
     Dates: start: 20010618, end: 20010714
  16. BROMAZEPAM [Concomitant]
     Active Substance: BROMAZEPAM
     Indication: CORONARY ARTERY DISEASE
     Dosage: 2 MILLIGRAM
     Route: 048
     Dates: start: 20010713, end: 20010714
  17. CAPTOPRIL. [Suspect]
     Active Substance: CAPTOPRIL
     Indication: CORONARY ARTERY DISEASE
     Dosage: 1 DOSAGE FORM
     Route: 048
     Dates: start: 20010616, end: 20010714
  18. AMPHOTERICIN B. [Suspect]
     Active Substance: AMPHOTERICIN B
     Indication: ANTIFUNGAL PROPHYLAXIS
     Dosage: 200 MILLIGRAM, QD
     Route: 048
     Dates: start: 20010703, end: 20010714
  19. DIAZEPAM. [Suspect]
     Active Substance: DIAZEPAM
     Dosage: 15 MILLIGRAM, QD
     Route: 048
     Dates: start: 20010616, end: 20010703
  20. LASIX [Suspect]
     Active Substance: FUROSEMIDE
     Dosage: 80 MILLIGRAM, QD
     Route: 042
     Dates: start: 20010703, end: 20010714
  21. CIPROFLOXACIN HYDROCHLORIDE. [Suspect]
     Active Substance: CIPROFLOXACIN HYDROCHLORIDE
     Indication: CHOLECYSTITIS
     Dosage: 500 MILLIGRAM, BID
     Route: 048
     Dates: start: 20010620, end: 20010628
  22. CIPROFLOXACIN HYDROCHLORIDE. [Suspect]
     Active Substance: CIPROFLOXACIN HYDROCHLORIDE
     Dosage: 500 MILLIGRAM, QD
     Route: 048
     Dates: start: 20010620, end: 20010628
  23. DECORTIN [Suspect]
     Active Substance: PREDNISONE
     Indication: RESTLESSNESS
     Dosage: 50 MILLIGRAM, QD
     Route: 042
     Dates: start: 20010703, end: 20010703
  24. ROCEPHIN [Suspect]
     Active Substance: CEFTRIAXONE SODIUM
     Indication: PYREXIA
     Dosage: 1 GRAM, BID
     Route: 042
     Dates: start: 20010629, end: 20010703
  25. EUNERPAN [Suspect]
     Active Substance: MELPERONE HYDROCHLORIDE
     Dosage: 16 MILLILITER, QD
     Route: 048
     Dates: start: 20010706, end: 20010712
  26. RAMIPRIL. [Suspect]
     Active Substance: RAMIPRIL
     Indication: CORONARY ARTERY DISEASE
     Dosage: 5 MILLIGRAM, QD
     Route: 048
     Dates: start: 20010616, end: 20010714
  27. RAMIPRIL. [Suspect]
     Active Substance: RAMIPRIL
     Dosage: 10 MILLIGRAM, QD
     Route: 048
     Dates: start: 20010616, end: 20010714
  28. NOVODIGAL (.BETA.?ACETYLDIGOXIN) [Suspect]
     Active Substance: .BETA.-ACETYLDIGOXIN
     Indication: CORONARY ARTERY DISEASE
     Dosage: 0.2 MILLIGRAM, QD
     Route: 048
     Dates: start: 20010703, end: 20010714
  29. METFORMIN HYDROCHLORIDE. [Suspect]
     Active Substance: METFORMIN HYDROCHLORIDE
     Indication: CORONARY ARTERY DISEASE
     Dosage: 250 MILLIGRAM, QD
     Route: 048
     Dates: start: 20010616, end: 20010714
  30. PLAVIX [Suspect]
     Active Substance: CLOPIDOGREL BISULFATE
     Indication: CORONARY ARTERY DISEASE
     Dosage: 75 MILLIGRAM, QD
     Route: 048
     Dates: start: 20010704, end: 20010714
  31. AMPHOTERICIN B;TETRACYCLINE HYDROCHLORIDE [Suspect]
     Active Substance: AMPHOTERICIN B\TETRACYCLINE
     Dosage: 8 DOSAGE FORM, QD
     Route: 048
     Dates: start: 20010703, end: 20010714
  32. PREDNISOLONE SODIUM SUCCINATE [Suspect]
     Active Substance: PREDNISOLONE SODIUM SUCCINATE
     Indication: DYSPNOEA
     Dosage: 50 MILLIGRAM, QD
     Route: 042
     Dates: start: 20010703, end: 20010703
  33. NORVASC [Suspect]
     Active Substance: AMLODIPINE BESYLATE
     Dosage: 10 MILLIGRAM, QD
     Route: 048
     Dates: start: 20010703, end: 20010714
  34. METOCLOPRAMIDE HYDROCHLORIDE. [Suspect]
     Active Substance: METOCLOPRAMIDE HYDROCHLORIDE
     Indication: NAUSEA
     Dosage: 7 MILLIGRAM, QD
     Route: 048
     Dates: start: 20010704, end: 20010712
  35. CONCOR [Suspect]
     Active Substance: BISOPROLOL FUMARATE
     Indication: CORONARY ARTERY DISEASE
     Dosage: 8 MILLIGRAM
     Route: 048
     Dates: start: 20010616, end: 20010714
  36. POTASSIUM CHLORIDE [POTASSIUM CHLORIDE;RIBOFLAVIN SODIUM PHOSPHATE] [Concomitant]
     Indication: ELECTROLYTE IMBALANCE
     Dosage: 1500 MILLIGRAM, Q12H
     Route: 048
     Dates: start: 20010703, end: 20010714
  37. BROMAZEPAM [Concomitant]
     Active Substance: BROMAZEPAM
     Indication: RESTLESSNESS
  38. PARACETAMOL [Suspect]
     Active Substance: ACETAMINOPHEN
     Indication: PAIN
     Dosage: 500 MILLIGRAM, QD
     Route: 048
     Dates: start: 20010711, end: 20010711
  39. DIAZEPAM. [Suspect]
     Active Substance: DIAZEPAM
     Indication: RESTLESSNESS
     Dosage: 5 MILLIGRAM
     Route: 048
     Dates: start: 20010616, end: 20010703
  40. AMARYL [Suspect]
     Active Substance: GLIMEPIRIDE
     Indication: DIABETES MELLITUS
     Dosage: 3 MILLIGRAM, QD
     Route: 048
     Dates: start: 20010616, end: 20010703
  41. CONCOR [Suspect]
     Active Substance: BISOPROLOL FUMARATE
     Dosage: 5 MILLIGRAM
     Route: 048
  42. PANTOZOL [Suspect]
     Active Substance: PANTOPRAZOLE SODIUM
     Dosage: 40 MILLIGRAM, QD
     Route: 048
     Dates: start: 20010714
  43. HALDOL [Suspect]
     Active Substance: HALOPERIDOL
     Indication: RESTLESSNESS
     Dosage: 3 GTT DROPS
     Route: 048
     Dates: start: 20010713, end: 20010714
  44. SORTIS [Suspect]
     Active Substance: ATORVASTATIN
     Indication: HYPERLIPIDAEMIA
     Dosage: 20 MILLIGRAM, QD
     Route: 048
     Dates: start: 20010616, end: 20010703
  45. METFORMIN HYDROCHLORIDE. [Suspect]
     Active Substance: METFORMIN HYDROCHLORIDE
     Indication: DIABETES MELLITUS
     Dosage: 7 MILLIGRAM, QD
     Route: 048
     Dates: start: 20010616, end: 20010714
  46. ASPIRIN [ACETYLSALICYLIC ACID] [Suspect]
     Active Substance: ASPIRIN
     Indication: CORONARY ARTERY DISEASE
     Dosage: 100 MILLIGRAM, QD
     Route: 048
     Dates: start: 20010616, end: 20010714
  47. NORVASC [Suspect]
     Active Substance: AMLODIPINE BESYLATE
     Indication: CORONARY ARTERY DISEASE
     Dosage: 5 MILLIGRAM, QD
     Route: 048
     Dates: start: 20010703, end: 20010714
  48. DIGOXIN. [Suspect]
     Active Substance: DIGOXIN
     Indication: CORONARY ARTERY DISEASE
     Dosage: 0.2 MILLIGRAM, QD
     Route: 048
     Dates: start: 20010703, end: 20010714
  49. MOLSIDOMINE [Suspect]
     Active Substance: MOLSIDOMINE
     Indication: CORONARY ARTERY DISEASE
     Dosage: 16 MG, EVERY 12 DAYS
     Route: 048
     Dates: start: 20010703
  50. ZAROXOLYN [Suspect]
     Active Substance: METOLAZONE
     Indication: HYPERTENSION
     Dosage: 2 MILLIGRAM, QD
     Route: 048
     Dates: start: 20010712, end: 20010713
  51. BENURON [Suspect]
     Active Substance: ACETAMINOPHEN
     Indication: PAIN
     Dosage: 500 MILLIGRAM
     Route: 048
     Dates: start: 20010711, end: 20010711
  52. GLIMEPIRIDE. [Concomitant]
     Active Substance: GLIMEPIRIDE
     Indication: DIABETES MELLITUS
     Dosage: 3 MILLIGRAM, QD
     Route: 048
     Dates: start: 20010703
  53. TRANXILIUM [Suspect]
     Active Substance: CLORAZEPATE DIPOTASSIUM
     Indication: RESTLESSNESS
     Dosage: 10 MILLIGRAM, QD
     Route: 048
     Dates: start: 20010710, end: 20010714
  54. DIGOXIN. [Suspect]
     Active Substance: DIGOXIN
     Dosage: 0.3 MILLIGRAM
     Route: 048
     Dates: start: 20010703, end: 20010714
  55. EUNERPAN [Suspect]
     Active Substance: MELPERONE HYDROCHLORIDE
     Indication: RESTLESSNESS
     Dosage: 105 MILLIGRAM, QD
     Route: 048
     Dates: start: 20010706, end: 20010712
  56. CARBIMAZOLE [Suspect]
     Active Substance: CARBIMAZOLE
     Indication: HYPERTHYROIDISM
     Dosage: 30 MILLIGRAM, QD
     Route: 048
     Dates: start: 20010621, end: 20010714
  57. CIPROFLOXACIN HYDROCHLORIDE. [Suspect]
     Active Substance: CIPROFLOXACIN HYDROCHLORIDE
     Dosage: 250 MILLIGRAM, BID
     Route: 048
     Dates: start: 20010710, end: 20010711
  58. DECORTIN [Suspect]
     Active Substance: PREDNISONE
     Indication: DYSPNOEA
     Dosage: 50 MILLIGRAM, QD
     Route: 048
     Dates: start: 20010703, end: 20010703

REACTIONS (14)
  - Toxic epidermal necrolysis [Fatal]
  - Multiple organ dysfunction syndrome [Fatal]
  - Cholelithiasis [Fatal]
  - Restlessness [Fatal]
  - Condition aggravated [Fatal]
  - Dermatitis exfoliative [Fatal]
  - Electrolyte imbalance [Fatal]
  - Blister [Fatal]
  - Diarrhoea [Fatal]
  - Respiratory disorder [Fatal]
  - Nausea [Fatal]
  - Cholecystitis [Fatal]
  - Hyperthyroidism [Fatal]
  - Erythema [Fatal]

NARRATIVE: CASE EVENT DATE: 20010703
